FAERS Safety Report 4760475-5 (Version None)
Quarter: 2005Q3

REPORT INFORMATION
  Report Type: 
  Country: None (occurrence: None)
  Receive Date: 20050902
  Receipt Date: 20050629
  Transmission Date: 20060218
  Serious: Yes (Other)
  Sender: FDA-Public Use
  Company Number: US-MERCK-0507USA00188

PATIENT
  Age: 50 Year
  Sex: Male
  Weight: 91 kg

DRUGS (9)
  1. VIOXX [Suspect]
     Indication: ARTHRITIS
     Route: 048
     Dates: start: 20010512, end: 20031103
  2. ALPRAZOLAM [Concomitant]
     Route: 065
     Dates: start: 19960403
  3. FUROSEMIDE [Concomitant]
     Route: 065
     Dates: start: 19990402
  4. ISOSORBIDE [Concomitant]
     Route: 065
     Dates: start: 19990604
  5. KLOR-CON [Concomitant]
     Route: 065
     Dates: start: 20021007
  6. NEXIUM [Concomitant]
     Route: 065
     Dates: start: 20020206
  7. SEROQUEL [Concomitant]
     Route: 065
     Dates: start: 19990305
  8. ASPIRIN [Concomitant]
     Route: 065
     Dates: start: 20010101
  9. LIPITOR [Concomitant]
     Route: 065
     Dates: start: 20010101, end: 20030101

REACTIONS (1)
  - MYOCARDIAL INFARCTION [None]
